FAERS Safety Report 4684442-5 (Version None)
Quarter: 2005Q2

REPORT INFORMATION
  Report Type: 
  Country: None (occurrence: None)
  Receive Date: 20050531
  Receipt Date: 20050111
  Transmission Date: 20051028
  Serious: Yes (Other)
  Sender: FDA-Public Use
  Company Number: USA040671193

PATIENT
  Age: 14 Year
  Sex: Male
  Weight: 67 kg

DRUGS (5)
  1. STRATTERA [Suspect]
     Indication: ATTENTION DEFICIT/HYPERACTIVITY DISORDER
     Dosage: 60 MG DAY
  2. ZYPREXA [Suspect]
     Indication: SOMNOLENCE
     Dosage: 10 MG/1 AT BEDTIME
     Dates: start: 20031001
  3. ADDERALL [Concomitant]
  4. CONCERTA [Concomitant]
  5. ZOLOFT [Concomitant]

REACTIONS (12)
  - ANOREXIA [None]
  - BREAST TENDERNESS [None]
  - CHEST PAIN [None]
  - FEELING COLD [None]
  - GYNAECOMASTIA [None]
  - HAEMOPTYSIS [None]
  - HYPERPHAGIA [None]
  - HYPERSOMNIA [None]
  - HYPERTENSION [None]
  - NAUSEA [None]
  - RHINITIS ALLERGIC [None]
  - WEIGHT INCREASED [None]
